FAERS Safety Report 8249237-4 (Version None)
Quarter: 2012Q1

REPORT INFORMATION
  Report Type: 
  Country: None (occurrence: None)
  Receive Date: 20120321
  Receipt Date: 20120221
  Transmission Date: 20120608
  Serious: Yes (Other)
  Sender: FDA-Public Use
  Company Number: 2012031379

PATIENT
  Age: 12 Month
  Sex: Female
  Weight: 12.7007 kg

DRUGS (5)
  1. HIZENTRA [Suspect]
     Indication: IMMUNODEFICIENCY COMMON VARIABLE
     Dosage: (1 G 1X/WEEK, 1 GM (2 SITES OVER 1 HOUR) SUBCUTANEOUS)
     Route: 058
     Dates: start: 20120217, end: 20120217
  2. ACETAMINOPHEN [Concomitant]
  3. ROCEPHIN [Concomitant]
  4. PREVACID [Concomitant]
  5. AMOXICILLIN [Concomitant]

REACTIONS (2)
  - PRODUCTIVE COUGH [None]
  - PNEUMONIA PRIMARY ATYPICAL [None]
